FAERS Safety Report 7113835-1 (Version None)
Quarter: 2010Q4

REPORT INFORMATION
  Report Type: 
  Country: None (occurrence: None)
  Receive Date: 20101119
  Receipt Date: 20101111
  Transmission Date: 20110411
  Serious: Yes (Hospitalization)
  Sender: FDA-Public Use
  Company Number: AU-MERCK-1011USA01493

PATIENT

DRUGS (8)
  1. JANUVIA [Suspect]
     Route: 048
  2. CITALOPRAM [Concomitant]
     Route: 065
  3. CANDESARTAN [Concomitant]
     Route: 065
  4. FUROSEMIDE [Concomitant]
     Route: 065
  5. ASPIRIN [Concomitant]
     Route: 065
  6. ATENOLOL [Concomitant]
     Route: 065
  7. ISOSORBIDE MONONITRATE [Concomitant]
     Route: 065
  8. AMLODIPINE [Concomitant]
     Route: 065

REACTIONS (10)
  - ANAEMIA [None]
  - BLOOD BICARBONATE DECREASED [None]
  - BLOOD LACTIC ACID INCREASED [None]
  - BLOOD METHANOL INCREASED [None]
  - BLOOD PH DECREASED [None]
  - BRADYCARDIA [None]
  - DEHYDRATION [None]
  - DRUG SCREEN POSITIVE [None]
  - GLOMERULAR FILTRATION RATE ABNORMAL [None]
  - HYPERTENSION [None]
